FAERS Safety Report 4841277-8 (Version None)
Quarter: 2005Q4

REPORT INFORMATION
  Report Type: 
  Country: None (occurrence: None)
  Receive Date: 20051130
  Receipt Date: 20051117
  Transmission Date: 20060501
  Serious: Yes (Other)
  Sender: FDA-Public Use
  Company Number: PHNU2005PL03825

PATIENT
  Sex: Female

DRUGS (1)
  1. AREDIA [Suspect]
     Indication: PLASMACYTOMA
     Dates: start: 20010101

REACTIONS (2)
  - OSTEONECROSIS [None]
  - TOOTH LOSS [None]
